FAERS Safety Report 6722374-9 (Version None)
Quarter: 2010Q2

REPORT INFORMATION
  Report Type: 
  Country: None (occurrence: None)
  Receive Date: 20100512
  Receipt Date: 20100430
  Transmission Date: 20101027
  Serious: Yes (Hospitalization)
  Sender: FDA-Public Use
  Company Number: JP-BRISTOL-MYERS SQUIBB COMPANY-15100720

PATIENT
  Age: 59 Year
  Sex: Male
  Weight: 56 kg

DRUGS (10)
  1. ERBITUX [Suspect]
     Indication: RECTAL CANCER
     Dosage: 16JUN09:400MG 23JUN09 30JUN09 7JUL09 21JUL09
     Route: 042
     Dates: start: 20090609, end: 20090721
  2. IRINOTECAN [Concomitant]
     Indication: RECTAL CANCER
     Route: 042
     Dates: start: 20090609, end: 20090707
  3. CHLOR-TRIMETON [Concomitant]
     Indication: PREMEDICATION
     Route: 042
     Dates: start: 20090609, end: 20090721
  4. DECADRON [Concomitant]
     Indication: PREMEDICATION
     Route: 042
     Dates: start: 20090609, end: 20090721
  5. GRANISETRON [Concomitant]
     Indication: ANTIEMETIC SUPPORTIVE CARE
     Route: 042
     Dates: start: 20090609, end: 20090721
  6. TAKEPRON [Concomitant]
     Indication: GASTRIC ULCER
     Route: 048
     Dates: end: 20090601
  7. CYANOCOBALAMIN [Concomitant]
     Indication: DIABETES MELLITUS
     Dosage: TABS
     Route: 048
     Dates: start: 20080828
  8. CRESTOR [Concomitant]
     Indication: DIABETES MELLITUS
     Dosage: TABS
     Route: 048
     Dates: start: 20090731
  9. GLUFAST [Concomitant]
     Indication: DIABETES MELLITUS
     Route: 048
     Dates: start: 20080828
  10. KENALOG IN ORABASE [Concomitant]
     Indication: STOMATITIS
     Dates: start: 20090609, end: 20090728

REACTIONS (1)
  - CHEST DISCOMFORT [None]
